FAERS Safety Report 5721668-3 (Version None)
Quarter: 2008Q2

REPORT INFORMATION
  Report Type: 
  Country: None (occurrence: None)
  Receive Date: 20080429
  Receipt Date: 20080425
  Transmission Date: 20081010
  Serious: Yes (Other)
  Sender: FDA-Public Use
  Company Number: PHNU2008DE01659

PATIENT
  Age: 63 Year
  Sex: Female

DRUGS (2)
  1. CLOZAPINE [Suspect]
     Indication: SCHIZOPHRENIA
     Dosage: 350MG/DAY
     Route: 048
     Dates: start: 19950101, end: 20080424
  2. CLOZAPINE [Suspect]
     Dosage: 250MG/DAY
     Route: 048
     Dates: start: 20080425

REACTIONS (4)
  - CHEMOTHERAPY [None]
  - LEUKOPENIA [None]
  - NEUTROPENIA [None]
  - OVARIAN CANCER [None]
